FAERS Safety Report 14485073 (Version 4)
Quarter: 2018Q1

REPORT INFORMATION
  Report Type: Spontaneous
  Country: US (occurrence: US)
  Receive Date: 20180205
  Receipt Date: 20180328
  Transmission Date: 20180509
  Serious: Yes (Hospitalization)
  Sender: FDA-Public Use
  Company Number: US-PFIZER INC-2018044064

PATIENT
  Age: 61 Year
  Sex: Female

DRUGS (4)
  1. NIFEDIPINE. [Concomitant]
     Active Substance: NIFEDIPINE
     Indication: BLOOD PRESSURE ABNORMAL
     Dosage: 30 MG, DAILY (PER DAY)
     Route: 048
  2. XALKORI [Suspect]
     Active Substance: CRIZOTINIB
     Dosage: 250 MG, 2X/DAY (1 CAPSULES BY MOUTH TWICE PER DAY)
     Route: 048
     Dates: start: 20180130
  3. XALKORI [Suspect]
     Active Substance: CRIZOTINIB
     Indication: LUNG NEOPLASM MALIGNANT
     Dosage: 250 MG, 2X/DAY(MORNING AND AFTERNOON)
  4. SYNTHROID [Concomitant]
     Active Substance: LEVOTHYROXINE SODIUM
     Indication: THYROID DISORDER
     Dosage: 75 UG, DAILY (1 TABLET TAKEN BY MOUTH DAILY)
     Route: 048

REACTIONS (14)
  - Asthenia [Recovered/Resolved]
  - Dysgeusia [Unknown]
  - Pain in extremity [Recovered/Resolved]
  - Chest discomfort [Unknown]
  - Decreased appetite [Unknown]
  - Pain [Recovered/Resolved]
  - Neoplasm progression [Unknown]
  - Malaise [Unknown]
  - Musculoskeletal pain [Recovered/Resolved]
  - Cardiac disorder [Unknown]
  - Heart rate decreased [Recovered/Resolved]
  - Urinary tract disorder [Unknown]
  - Urinary tract pain [Unknown]
  - Blood pressure abnormal [Unknown]
